FAERS Safety Report 12470468 (Version 5)
Quarter: 2017Q1

REPORT INFORMATION
  Report Type: Spontaneous
  Country: US (occurrence: US)
  Receive Date: 20160616
  Receipt Date: 20170224
  Transmission Date: 20170428
  Serious: Yes (Hospitalization)
  Sender: FDA-Public Use
  Company Number: US-PFIZER INC-2015445632

PATIENT
  Age: 70 Year
  Sex: Female

DRUGS (3)
  1. XGEVA [Suspect]
     Active Substance: DENOSUMAB
     Dosage: UNK
  2. IBRANCE [Suspect]
     Active Substance: PALBOCICLIB
     Indication: BREAST CANCER
     Dosage: 100 MG, CYCLIC (100 MG 1 TAB DAILY X2/DAY FOLLOWED 7 DAYS)
  3. IBRANCE [Suspect]
     Active Substance: PALBOCICLIB
     Dosage: 75 MG (1 CAPSULE), CYCLIC (DAILY, ON DAY 1-21 AND IS OFF FOR 7 DAYS, EVERY 28 DAYS)
     Route: 048

REACTIONS (2)
  - Tooth disorder [Not Recovered/Not Resolved]
  - Gingivitis [Not Recovered/Not Resolved]
